FAERS Safety Report 17002986 (Version 1)
Quarter: 2019Q4

REPORT INFORMATION
  Report Type: Spontaneous
  Country: GB (occurrence: GB)
  Receive Date: 20191107
  Receipt Date: 20191107
  Transmission Date: 20200122
  Serious: Yes (Life-Threatening, Hospitalization, Disabling)
  Sender: FDA-Public Use
  Company Number: GB-ACCORD-159988

PATIENT
  Age: 67 Year
  Sex: Male

DRUGS (9)
  1. AZACITIDINE. [Suspect]
     Active Substance: AZACITIDINE
     Indication: MYELODYSPLASTIC SYNDROME
     Dosage: DAYS 1-7 OF 28 DAY CYCLE
     Route: 058
     Dates: start: 201705, end: 201712
  2. SULFAMETHOXAZOLE/TRIMETHOPRIM [Concomitant]
  3. ACICLOVIR [Concomitant]
     Active Substance: ACYCLOVIR
  4. CIPROFLOXACIN. [Concomitant]
     Active Substance: CIPROFLOXACIN
  5. EPLERENONE. [Concomitant]
     Active Substance: EPLERENONE
  6. LOSARTAN. [Concomitant]
     Active Substance: LOSARTAN
  7. FUROSEMIDE. [Concomitant]
     Active Substance: FUROSEMIDE
  8. ITRACONAZOLE. [Suspect]
     Active Substance: ITRACONAZOLE
     Indication: ANTIFUNGAL PROPHYLAXIS
     Route: 048
     Dates: start: 201705
  9. BISOPROLOL [Concomitant]
     Active Substance: BISOPROLOL

REACTIONS (2)
  - Cardiac failure [Not Recovered/Not Resolved]
  - Left ventricular dysfunction [Not Recovered/Not Resolved]

NARRATIVE: CASE EVENT DATE: 20171001
